FAERS Safety Report 20047972 (Version 2)
Quarter: 2021Q4

REPORT INFORMATION
  Report Type: Spontaneous
  Country: US (occurrence: US)
  Receive Date: 20211109
  Receipt Date: 20211129
  Transmission Date: 20220303
  Serious: Yes (Other)
  Sender: FDA-Public Use
  Company Number: US-BAYER-2021A245616

PATIENT
  Age: 15 Year
  Sex: Male

DRUGS (2)
  1. KOGENATE FS [Suspect]
     Active Substance: ANTIHEMOPHILIC FACTOR, HUMAN RECOMBINANT
     Dosage: 4800 U
     Route: 042
  2. KOGENATE FS [Suspect]
     Active Substance: ANTIHEMOPHILIC FACTOR, HUMAN RECOMBINANT
     Dosage: 4800 U, ONCE - TO TREAT KNEE BLEEDING
     Route: 042
     Dates: start: 20211030, end: 20211030

REACTIONS (4)
  - Haemarthrosis [None]
  - Arthralgia [None]
  - Gait disturbance [None]
  - Joint range of motion decreased [None]

NARRATIVE: CASE EVENT DATE: 20211028
